FAERS Safety Report 8035923-8 (Version None)
Quarter: 2012Q1

REPORT INFORMATION
  Report Type: 
  Country: None (occurrence: None)
  Receive Date: 20120111
  Receipt Date: 20110609
  Transmission Date: 20120608
  Serious: Yes (Hospitalization)
  Sender: FDA-Public Use
  Company Number: BR-ASTRAZENECA-2010SE41851

PATIENT
  Age: 90 Year
  Sex: Female
  Weight: 90 kg

DRUGS (7)
  1. VITERGAN ZINCO [Concomitant]
     Indication: ANTIOXIDANT THERAPY
     Route: 048
     Dates: start: 20050101
  2. POTASSIUM CHLORIDE [Concomitant]
     Indication: HYPERTENSION
     Route: 048
     Dates: start: 20050101
  3. BUFFERIN [Concomitant]
     Indication: ANTICOAGULANT THERAPY
     Route: 048
     Dates: start: 20050101
  4. SEROQUEL [Suspect]
     Indication: RESTLESSNESS
     Route: 048
     Dates: start: 20050101, end: 20090101
  5. METHOTREXATE [Concomitant]
     Indication: RHEUMATOID ARTHRITIS
     Route: 048
     Dates: start: 20050101, end: 20100728
  6. FUROSEMIDE [Concomitant]
     Indication: HYPERTENSION
     Route: 048
     Dates: start: 20050101
  7. SEROQUEL [Suspect]
     Route: 048
     Dates: start: 20090101

REACTIONS (7)
  - PNEUMONIA [None]
  - ARTHRALGIA [None]
  - RESTLESSNESS [None]
  - FATIGUE [None]
  - HYPERTENSION [None]
  - DRUG INEFFECTIVE FOR UNAPPROVED INDICATION [None]
  - OFF LABEL USE [None]
